FAERS Safety Report 26077782 (Version 2)
Quarter: 2025Q4

REPORT INFORMATION
  Report Type: Spontaneous
  Country: US (occurrence: US)
  Receive Date: 20251122
  Receipt Date: 20251224
  Transmission Date: 20260118
  Serious: Yes (Hospitalization)
  Sender: MDD OPERATIONS
  Company Number: US-MDD US Operations-MDD202508-003091

PATIENT
  Age: 66 Year
  Sex: Male

DRUGS (1)
  1. ONAPGO [Suspect]
     Active Substance: APOMORPHINE HYDROCHLORIDE
     Indication: Parkinson^s disease
     Dosage: 3MG PER HOUR
     Dates: start: 20250716

REACTIONS (2)
  - Pseudostroke [Recovered/Resolved]
  - Fall [Unknown]

NARRATIVE: CASE EVENT DATE: 20250809
